FAERS Safety Report 5187371-6 (Version None)
Quarter: 2006Q4

REPORT INFORMATION
  Report Type: 
  Country: None (occurrence: None)
  Receive Date: 20061220
  Receipt Date: 20030915
  Transmission Date: 20070319
  Serious: No
  Sender: FDA-Public Use
  Company Number: US-AMGEN-US048195

PATIENT
  Sex: Female
  Weight: 68.1 kg

DRUGS (4)
  1. ENBREL [Suspect]
     Indication: JUVENILE ARTHRITIS
  2. MINOCYCLINE HCL [Suspect]
     Dates: start: 20011001
  3. METHOTREXATE [Suspect]
  4. HUMIRA [Concomitant]

REACTIONS (6)
  - ARTHRITIS [None]
  - ASPARTATE AMINOTRANSFERASE INCREASED [None]
  - CHILLS [None]
  - HEPATOCELLULAR DAMAGE [None]
  - LIVER FUNCTION TEST ABNORMAL [None]
  - MALAISE [None]
